FAERS Safety Report 7815592-X (Version None)
Quarter: 2011Q4

REPORT INFORMATION
  Report Type: 
  Country: None (occurrence: None)
  Receive Date: 20111014
  Receipt Date: 20111011
  Transmission Date: 20120403
  Serious: Yes (Other)
  Sender: FDA-Public Use
  Company Number: CHPA2011US13977

PATIENT
  Age: 24 Year
  Sex: Female

DRUGS (3)
  1. EXCEDRIN (MIGRAINE) [Suspect]
     Dosage: 4 DF, 1-4 HOURS
     Route: 048
  2. EXCEDRIN TENSION HEADACHE [Suspect]
     Dosage: 4 DF, 1-4 HOURS
     Route: 048
  3. EXCEDRIN (MIGRAINE) [Suspect]
     Dosage: 4 DF, 1-4 HOURS
     Route: 048

REACTIONS (10)
  - PANIC REACTION [None]
  - INSOMNIA [None]
  - HEART RATE INCREASED [None]
  - PAIN [None]
  - FEELING ABNORMAL [None]
  - DRUG DEPENDENCE [None]
  - OVERDOSE [None]
  - HOMICIDAL IDEATION [None]
  - DEAFNESS [None]
  - VOMITING [None]
